FAERS Safety Report 18601286 (Version 3)
Quarter: 2022Q1

REPORT INFORMATION
  Report Type: Spontaneous
  Country: US (occurrence: US)
  Receive Date: 20201210
  Receipt Date: 20220202
  Transmission Date: 20220423
  Serious: Yes (Hospitalization, Other)
  Sender: FDA-Public Use
  Company Number: US-PURDUE PHARMA-USA-2020-0183223

PATIENT
  Sex: Male

DRUGS (14)
  1. BUPRENORPHINE [Suspect]
     Active Substance: BUPRENORPHINE
     Indication: Pain
     Dosage: 5 MCG/HR, WEEKLY
     Route: 062
     Dates: start: 2020
  2. BUPRENORPHINE [Suspect]
     Active Substance: BUPRENORPHINE
     Indication: Degenerative bone disease
     Dosage: 10 MCG/HR, UNK
     Route: 062
  3. BUPRENORPHINE [Suspect]
     Active Substance: BUPRENORPHINE
     Dosage: 20 MCG/HR, WEEKLY, 2 1/2 YEARS AGO
     Route: 062
  4. MORPHINE SULFATE [Suspect]
     Active Substance: MORPHINE SULFATE
     Indication: Product used for unknown indication
     Dosage: UNKNOWN
     Route: 065
  5. FOLIC ACID [Concomitant]
     Active Substance: FOLIC ACID
     Indication: Abdominal pain
     Dosage: 1 MG, DAILY, 4-5 YEARS AGO
     Route: 048
  6. PREGABALIN [Concomitant]
     Active Substance: PREGABALIN
     Indication: Burning feet syndrome
     Dosage: 200 MG, TID, 8-9 MONTHS AGO
     Route: 048
  7. METHOCARBAMOL [Concomitant]
     Active Substance: METHOCARBAMOL
     Indication: Muscle spasms
     Dosage: 750 MG, BID, COUPLE YEARS AGO
     Route: 048
  8. B COMPLEX                          /02945401/ [Concomitant]
     Indication: Blood disorder
     Dosage: UNK, DAILY, COUPLE OF YEARS
     Route: 048
  9. LOSARTAN [Concomitant]
     Active Substance: LOSARTAN
     Indication: Blood pressure measurement
     Dosage: 20 MG, DAILY, 4-5 YEARS AGO
     Route: 048
  10. FAMOTIDINE [Concomitant]
     Active Substance: FAMOTIDINE
     Indication: Gastrointestinal disorder
     Dosage: 20 MG, TID, YEARS, DAILY/PA CHANGED IT TO TWICE DAILY HE TAKES IT ONCE DAILY.
     Route: 048
  11. FAMOTIDINE [Concomitant]
     Active Substance: FAMOTIDINE
     Dosage: 20 MG, DAILY, YEARS, DAILY/PA CHANGED IT TO TWICE DAILY HE TAKES IT ONCE DAILY.
     Route: 048
  12. MULTIVITAMIN                       /00097801/ [Concomitant]
     Indication: Discomfort
     Dosage: UNK, DAILY, 40 YEARS
     Route: 048
  13. CETIRIZINE [Concomitant]
     Active Substance: CETIRIZINE HYDROCHLORIDE
     Indication: Hypersensitivity
     Dosage: 10 MG, DAILY, 10-15 YEARS AGO
     Route: 048
  14. PANTOPRAZOLE [Concomitant]
     Active Substance: PANTOPRAZOLE
     Indication: Gastrointestinal disorder
     Dosage: 1 YEAR AGO, THERAPY END 3 TO 4 MONTHS AGO
     Route: 048

REACTIONS (6)
  - Cholelithiasis [Unknown]
  - Gallbladder oedema [Not Recovered/Not Resolved]
  - Aortic aneurysm [Not Recovered/Not Resolved]
  - Abdominal pain [Not Recovered/Not Resolved]
  - Abdominal mass [Unknown]
  - Product adhesion issue [Unknown]

NARRATIVE: CASE EVENT DATE: 20200101
